FAERS Safety Report 12514367 (Version 1)
Quarter: 2016Q2

REPORT INFORMATION
  Report Type: Spontaneous
  Country: US (occurrence: None)
  Receive Date: 20160629
  Receipt Date: 20160629
  Transmission Date: 20160815
  Serious: No
  Sender: FDA-Public Use
  Company Number: None

PATIENT
  Age: 48 Year
  Sex: Female

DRUGS (1)
  1. GLATOPA [Suspect]
     Active Substance: GLATIRAMER ACETATE
     Indication: MULTIPLE SCLEROSIS
     Dosage: 20MG/ML PFS QD SC
     Route: 058
     Dates: start: 20160602

REACTIONS (2)
  - Injection site reaction [None]
  - Injection site discolouration [None]

NARRATIVE: CASE EVENT DATE: 201605
